FAERS Safety Report 8802121 (Version 2)
Quarter: 2012Q4

REPORT INFORMATION
  Report Type: Report from Study
  Country: US (occurrence: US)
  Receive Date: 20120921
  Receipt Date: 20120924
  Transmission Date: 20130627
  Serious: Yes (Hospitalization, Other)
  Sender: FDA-Public Use
  Company Number: US-ABBOTT-12P-163-0978901-00

PATIENT
  Age: 65 Year
  Sex: Male

DRUGS (1)
  1. HUMIRA [Suspect]
     Indication: CROHN^S DISEASE
     Dates: start: 20120713

REACTIONS (5)
  - Unevaluable event [Recovering/Resolving]
  - Weight decreased [Unknown]
  - Cystitis [Unknown]
  - Atrial fibrillation [Unknown]
  - Cerebrovascular accident [Unknown]
